FAERS Safety Report 8594069-0 (Version None)
Quarter: 2012Q3

REPORT INFORMATION
  Report Type: 
  Country: None (occurrence: None)
  Receive Date: 20120814
  Receipt Date: 20120808
  Transmission Date: 20120928
  Serious: Yes (Other)
  Sender: FDA-Public Use
  Company Number: JP-EISAI INC-E2020-11179-SPO-JP

PATIENT
  Age: 81 Year
  Sex: Female

DRUGS (10)
  1. QUETIAPINE [Concomitant]
     Dosage: REDUCED (DOSE UNKNOWN)
  2. BLONANSERIN [Concomitant]
     Dosage: 4 MG DAILY
  3. BLONANSERIN [Concomitant]
     Dosage: 2 MG DAILY
  4. BLONANSERIN [Concomitant]
     Dosage: 3 MG DAILY
  5. YOKUKAN-SAN [Concomitant]
     Dosage: BELOW 7.5 G DAILY
  6. ARICEPT [Suspect]
     Indication: DEMENTIA WITH LEWY BODIES
     Dosage: BELOW 5 MG DAILY
     Route: 048
  7. BLONANSERIN [Concomitant]
     Dosage: 2 MG DAILY
  8. BLONANSERIN [Concomitant]
     Dosage: 5 MG DAILY
  9. QUETIAPINE [Concomitant]
     Dosage: BELOW 50 MG DAILY
  10. BLONANSERIN [Concomitant]
     Dosage: 6 MG DAILY

REACTIONS (2)
  - DELIRIUM [None]
  - AGITATION [None]
